FAERS Safety Report 20968901 (Version 1)
Quarter: 2022Q2

REPORT INFORMATION
  Report Type: Spontaneous
  Country: US (occurrence: None)
  Receive Date: 20220616
  Receipt Date: 20220616
  Transmission Date: 20220721
  Serious: No
  Sender: FDA-Public Use
  Company Number: None

PATIENT
  Age: 26 Year
  Sex: Female
  Weight: 100.8 kg

DRUGS (9)
  1. CAPLYTA [Suspect]
     Active Substance: LUMATEPERONE
     Indication: Bipolar II disorder
     Dosage: OTHER QUANTITY : 1 CAPSULE(S);?FREQUENCY : AT BEDTIME;?
     Route: 048
     Dates: start: 20220615, end: 20220616
  2. GABAPENTIN [Concomitant]
  3. CYMBALTA [Concomitant]
  4. ADDERALL [Concomitant]
  5. LOSARTAN [Concomitant]
  6. POTASSIUM [Concomitant]
  7. Clonazepam (PRN) [Concomitant]
  8. Vitamins d [Concomitant]
  9. VITAMINS [Concomitant]
     Active Substance: VITAMINS

REACTIONS (6)
  - Headache [None]
  - Myalgia [None]
  - Asthenia [None]
  - Somnolence [None]
  - Irritability [None]
  - Pain [None]

NARRATIVE: CASE EVENT DATE: 20220616
